FAERS Safety Report 5043715-7 (Version None)
Quarter: 2006Q2

REPORT INFORMATION
  Report Type: 
  Country: None (occurrence: None)
  Receive Date: 20060626
  Receipt Date: 20060626
  Transmission Date: 20061013
  Serious: Yes (Hospitalization)
  Sender: FDA-Public Use
  Company Number: None

PATIENT
  Sex: Female
  Weight: 60.782 kg

DRUGS (2)
  1. VALPROIC ACID [Suspect]
     Indication: BREAST CANCER METASTATIC
     Dosage: 7500 MG LOADING DOSE PO
     Route: 048
     Dates: start: 20060509, end: 20060511
  2. VALPROIC ACID [Suspect]
     Dosage: 3750 MG Q 12 HR PO
     Route: 048

REACTIONS (5)
  - ABDOMINAL PAIN [None]
  - DELIRIUM [None]
  - ELECTROCARDIOGRAM ABNORMAL [None]
  - MENTAL STATUS CHANGES [None]
  - SEPSIS [None]
